FAERS Safety Report 25533671 (Version 1)
Quarter: 2025Q3

REPORT INFORMATION
  Report Type: Spontaneous
  Country: EU (occurrence: EU)
  Receive Date: 20250709
  Receipt Date: 20250709
  Transmission Date: 20251020
  Serious: Yes (Hospitalization)
  Sender: NOVARTIS
  Company Number: EU-PMCS-2025000701

PATIENT
  Age: 56 Year
  Sex: Female

DRUGS (30)
  1. TERBINAFINE [Suspect]
     Active Substance: TERBINAFINE
     Indication: Trichophytosis
     Dosage: 250 MG, QD
     Route: 048
     Dates: start: 202411
  2. TERBINAFINE [Suspect]
     Active Substance: TERBINAFINE
     Indication: Fungal infection
     Dosage: 250 MG, QD
     Route: 048
  3. TERBINAFINE [Suspect]
     Active Substance: TERBINAFINE
     Indication: Antifungal treatment
     Route: 048
  4. PREDNISOLONE [Suspect]
     Active Substance: PREDNISOLONE
     Indication: Skin lesion
     Route: 065
     Dates: start: 202404
  5. HYDROCORTISONE ACETATE [Suspect]
     Active Substance: HYDROCORTISONE ACETATE
     Indication: Skin lesion
     Route: 065
     Dates: start: 202405
  6. HYDROCORTISONE ACETATE [Suspect]
     Active Substance: HYDROCORTISONE ACETATE
     Indication: Rash erythematous
     Route: 065
  7. TRIAMCINOLONE [Suspect]
     Active Substance: TRIAMCINOLONE
     Indication: Skin lesion
     Route: 065
     Dates: start: 202410
  8. TRIAMCINOLONE [Suspect]
     Active Substance: TRIAMCINOLONE
     Indication: Rash erythematous
  9. HEXAMIDINE DIISETHIONATE [Suspect]
     Active Substance: HEXAMIDINE DIISETHIONATE
     Indication: Skin lesion
     Route: 065
     Dates: start: 202404
  10. HEXAMIDINE DIISETHIONATE [Suspect]
     Active Substance: HEXAMIDINE DIISETHIONATE
     Indication: Rash erythematous
  11. CLOTRIMAZOLE [Suspect]
     Active Substance: CLOTRIMAZOLE
     Indication: Skin lesion
     Route: 065
     Dates: start: 202404
  12. CLOTRIMAZOLE [Suspect]
     Active Substance: CLOTRIMAZOLE
     Indication: Rash erythematous
  13. CLOBETASOL [Suspect]
     Active Substance: CLOBETASOL
     Indication: Skin lesion
     Route: 065
     Dates: start: 202410
  14. BETAMETHASONE\SALICYLIC ACID [Suspect]
     Active Substance: BETAMETHASONE\SALICYLIC ACID
     Indication: Pustule
     Route: 065
  15. METRONIDAZOLE [Suspect]
     Active Substance: METRONIDAZOLE
     Indication: Pustule
     Route: 065
     Dates: start: 202406
  16. PREDNISOLONE ACETATE [Suspect]
     Active Substance: PREDNISOLONE ACETATE
     Indication: Rash erythematous
     Route: 065
     Dates: start: 202404
  17. CLOBETASOL PROPIONATE [Suspect]
     Active Substance: CLOBETASOL PROPIONATE
     Indication: Tinea capitis
     Route: 065
     Dates: start: 202410
  18. CLOBETASOL PROPIONATE [Suspect]
     Active Substance: CLOBETASOL PROPIONATE
     Indication: Off label use
  19. CLOBETASOL PROPIONATE [Suspect]
     Active Substance: CLOBETASOL PROPIONATE
     Indication: Skin lesion
  20. BETAMETHASONE [Suspect]
     Active Substance: BETAMETHASONE
     Indication: Pustule
     Route: 065
  21. DEXAMETHASONE\TOBRAMYCIN [Concomitant]
     Active Substance: DEXAMETHASONE\TOBRAMYCIN
     Indication: Skin lesion inflammation
     Route: 065
  22. AMOXICILLIN [Concomitant]
     Active Substance: AMOXICILLIN
     Indication: Antibiotic therapy
     Route: 065
  23. AMOXICILLIN [Concomitant]
     Active Substance: AMOXICILLIN
     Route: 065
  24. IRON DEXTRAN [Concomitant]
     Active Substance: IRON DEXTRAN
     Indication: Supplementation therapy
     Route: 048
  25. IRON DEXTRAN [Concomitant]
     Active Substance: IRON DEXTRAN
     Route: 042
  26. IRON DEXTRAN [Concomitant]
     Active Substance: IRON DEXTRAN
     Route: 042
  27. IRON DEXTRAN [Concomitant]
     Active Substance: IRON DEXTRAN
     Route: 048
  28. ACYCLOVIR [Concomitant]
     Active Substance: ACYCLOVIR
     Indication: Antiviral treatment
     Route: 065
  29. Ciclopirox olamine arrow [Concomitant]
     Indication: Trichophytosis
     Route: 050
  30. Ciclopirox olamine arrow [Concomitant]
     Indication: Tinea capitis
     Route: 050

REACTIONS (7)
  - Hepatic enzyme increased [Recovering/Resolving]
  - Drug ineffective [Unknown]
  - Therapeutic product effect incomplete [Unknown]
  - Hepatic enzyme increased [Recovering/Resolving]
  - Disease progression [Unknown]
  - Product use in unapproved indication [Unknown]
  - Off label use [Unknown]

NARRATIVE: CASE EVENT DATE: 20241001
